FAERS Safety Report 5295061-4 (Version None)
Quarter: 2007Q1

REPORT INFORMATION
  Report Type: 
  Country: None (occurrence: None)
  Receive Date: 20070201
  Receipt Date: 20061020
  Transmission Date: 20070707
  Serious: No
  Sender: FDA-Public Use
  Company Number: 2006PV023626

PATIENT
  Age: 59 Year
  Sex: Female
  Weight: 94.1214 kg

DRUGS (1)
  1. BYETTA [Suspect]
     Indication: DIABETES MELLITUS NON-INSULIN-DEPENDENT
     Dosage: 5 MCG;BID;SC
     Route: 058
     Dates: start: 20061018

REACTIONS (4)
  - AURICULAR SWELLING [None]
  - CONDITION AGGRAVATED [None]
  - EAR PAIN [None]
  - PAIN IN JAW [None]
